FAERS Safety Report 8450565-8 (Version None)
Quarter: 2012Q2

REPORT INFORMATION
  Report Type: 
  Country: None (occurrence: None)
  Receive Date: 20120620
  Receipt Date: 20120606
  Transmission Date: 20120825
  Serious: Yes (Death, Hospitalization, Other)
  Sender: FDA-Public Use
  Company Number: JP-RANBAXY-2012RR-57113

PATIENT
  Age: 65 Year
  Sex: Female

DRUGS (10)
  1. TACROLIMUS [Suspect]
     Indication: IMMUNOSUPPRESSION
     Route: 065
  2. METHYLPREDNISOLONE [Suspect]
     Dosage: 1-2 MG/KG/DAY, FOR 1-6 POSTOPERATIVE DAYS
     Route: 042
  3. ALPROSTADIL [Suspect]
     Indication: ANTICOAGULANT THERAPY
     Dosage: UNK
     Route: 042
  4. MYCOPHENOLATE MOFETIL [Suspect]
     Indication: IMMUNOSUPPRESSANT DRUG THERAPY
     Route: 065
  5. METHYLPREDNISOLONE [Suspect]
     Indication: IMMUNOSUPPRESSION
     Dosage: 20 MG/KG, DURING SURGERY
     Route: 042
  6. GANCICLOVIR [Suspect]
     Indication: CYTOMEGALOVIRUS INFECTION
     Route: 042
  7. PREDNISOLONE [Suspect]
     Indication: IMMUNOSUPPRESSION
     Dosage: 0.3 MG/KG/DAY, 7 TO 28 DAYS
     Route: 048
  8. PREDNISOLONE [Suspect]
     Dosage: UNK
  9. PREDNISOLONE [Suspect]
     Dosage: 0.2 MG/KG/DAY, AFTER 28 DAYS
     Route: 048
  10. METHYLPREDNISOLONE [Suspect]
     Indication: ANTICOAGULANT THERAPY
     Dosage: UNK
     Route: 042

REACTIONS (4)
  - INTESTINAL PERFORATION [None]
  - HISTIOCYTOSIS HAEMATOPHAGIC [None]
  - PANCYTOPENIA [None]
  - CYTOMEGALOVIRUS INFECTION [None]
